FAERS Safety Report 4700499-7 (Version None)
Quarter: 2005Q2

REPORT INFORMATION
  Report Type: 
  Country: None (occurrence: None)
  Receive Date: 20050627
  Receipt Date: 20050620
  Transmission Date: 20051028
  Serious: Yes (Life-Threatening, Hospitalization)
  Sender: FDA-Public Use
  Company Number: 2005AC00924

PATIENT
  Age: 16 Year
  Sex: Female

DRUGS (3)
  1. PROPOFOL [Suspect]
     Indication: SEDATION
  2. MORPHINE [Concomitant]
  3. MIDAZOLAM HCL [Concomitant]

REACTIONS (10)
  - ACIDOSIS [None]
  - FLUID OVERLOAD [None]
  - GENERAL PHYSICAL HEALTH DETERIORATION [None]
  - HAEMODIALYSIS [None]
  - HEPATIC STEATOSIS [None]
  - MEDIUM-CHAIN ACETYL-COENZYME A DEHYDROGENASE DEFICIENCY [None]
  - RENAL FAILURE [None]
  - RHABDOMYOLYSIS [None]
  - VENTRICULAR DYSFUNCTION [None]
  - VENTRICULAR HYPERTROPHY [None]
